FAERS Safety Report 10994766 (Version 1)
Quarter: 2015Q2

REPORT INFORMATION
  Report Type: Spontaneous
  Country: US (occurrence: None)
  Receive Date: 20150406
  Receipt Date: 20150406
  Transmission Date: 20150821
  Serious: Yes (Life-Threatening)
  Sender: FDA-Public Use
  Company Number: None

PATIENT
  Age: 43 Year
  Sex: Female
  Weight: 74.84 kg

DRUGS (14)
  1. FENTANYL TRANSDERMAL SYSTEM [Suspect]
     Active Substance: FENTANYL
     Indication: MIGRAINE
     Dosage: 1 PATCH, Q2 DAYS (NORM 3), APPLIED AS MEDICATED PATCH TO SKIN
     Dates: start: 20150327, end: 20150329
  2. ZOMIG [Concomitant]
     Active Substance: ZOLMITRIPTAN
  3. BENICAR [Concomitant]
     Active Substance: OLMESARTAN MEDOXOMIL
  4. K-DUR [Concomitant]
     Active Substance: POTASSIUM CHLORIDE
  5. ZOFRAN [Concomitant]
     Active Substance: ONDANSETRON HYDROCHLORIDE
  6. NORCO [Concomitant]
     Active Substance: ACETAMINOPHEN\HYDROCODONE BITARTRATE
  7. DEXILANT [Concomitant]
     Active Substance: DEXLANSOPRAZOLE
  8. CRYSELLE [Concomitant]
     Active Substance: ETHINYL ESTRADIOL\NORGESTREL
  9. MIRALAX [Concomitant]
     Active Substance: POLYETHYLENE GLYCOL 3350
  10. LEVOTHYROXINE [Concomitant]
     Active Substance: LEVOTHYROXINE
  11. LASIX [Concomitant]
     Active Substance: FUROSEMIDE
  12. ZYRTEC-D [Concomitant]
     Active Substance: CETIRIZINE HYDROCHLORIDE\PSEUDOEPHEDRINE HYDROCHLORIDE
  13. NASACORT [Concomitant]
     Active Substance: TRIAMCINOLONE ACETONIDE
  14. KIRKLAND GUMMY MULTIVITAMIN [Concomitant]

REACTIONS (7)
  - Product adhesion issue [None]
  - Drug withdrawal syndrome [None]
  - Product substitution issue [None]
  - Nausea [None]
  - Product quality issue [None]
  - Fatigue [None]
  - Product physical consistency issue [None]

NARRATIVE: CASE EVENT DATE: 20150329
